FAERS Safety Report 4727500-9 (Version None)
Quarter: 2005Q3

REPORT INFORMATION
  Report Type: 
  Country: None (occurrence: None)
  Receive Date: 20050727
  Receipt Date: 20050727
  Transmission Date: 20060218
  Serious: Yes (Life-Threatening, Hospitalization)
  Sender: FDA-Public Use
  Company Number: None

PATIENT
  Sex: Male
  Weight: 10.4 kg

DRUGS (2)
  1. CYTARABINE [Suspect]
     Indication: ACUTE MYELOID LEUKAEMIA
     Dosage: 460 MG OVER 2 HOURS Q 12 HOURS X 6 IV
     Route: 042
     Dates: start: 20050628, end: 20050630
  2. MITOXANTRONE [Suspect]
     Indication: ACUTE MYELOID LEUKAEMIA
     Dosage: 3.3MG OVER 6 HOURS X 3 DAYS IV
     Route: 042
     Dates: start: 20050628, end: 20050630

REACTIONS (5)
  - ABDOMINAL DISTENSION [None]
  - FEBRILE NEUTROPENIA [None]
  - FUNGAL INFECTION [None]
  - HEPATIC LESION [None]
  - HEPATOMEGALY [None]
